FAERS Safety Report 23016250 (Version 1)
Quarter: 2023Q4

REPORT INFORMATION
  Report Type: Spontaneous
  Country: US (occurrence: US)
  Receive Date: 20231002
  Receipt Date: 20231002
  Transmission Date: 20240109
  Serious: No
  Sender: FDA-Public Use
  Company Number: US-MEDUNIK-2023US000278

PATIENT

DRUGS (1)
  1. PHEBURANE [Suspect]
     Active Substance: SODIUM PHENYLBUTYRATE
     Indication: Product used for unknown indication
     Dosage: UNK
     Dates: start: 202308

REACTIONS (4)
  - Abdominal discomfort [Unknown]
  - Drug intolerance [Unknown]
  - Product use complaint [Unknown]
  - Treatment noncompliance [Unknown]

NARRATIVE: CASE EVENT DATE: 20230801
